FAERS Safety Report 7635467-9 (Version None)
Quarter: 2011Q3

REPORT INFORMATION
  Report Type: 
  Country: None (occurrence: None)
  Receive Date: 20110726
  Receipt Date: 20110726
  Transmission Date: 20111222
  Serious: Yes (Death)
  Sender: FDA-Public Use
  Company Number: None

PATIENT
  Age: 34 Year
  Sex: Male
  Weight: 102.05 kg

DRUGS (1)
  1. DESMOPRESSIN [Suspect]
     Indication: DIABETES INSIPIDUS
     Dosage: DESMOPRESSIN 0.05MG PO BID
     Route: 048
     Dates: start: 20110601, end: 20110710

REACTIONS (2)
  - GRAND MAL CONVULSION [None]
  - BLOOD SODIUM DECREASED [None]
